FAERS Safety Report 5135481-1 (Version None)
Quarter: 2006Q4

REPORT INFORMATION
  Report Type: 
  Country: None (occurrence: None)
  Receive Date: 20061026
  Receipt Date: 20060913
  Transmission Date: 20070319
  Serious: Yes (Other)
  Sender: FDA-Public Use
  Company Number: 2006CG01548

PATIENT
  Age: 30587 Day
  Sex: Female
  Weight: 70 kg

DRUGS (7)
  1. CRESTOR [Suspect]
     Indication: HYPERCHOLESTEROLAEMIA
     Route: 048
     Dates: start: 20041101, end: 20060530
  2. ALDALIX [Concomitant]
     Route: 048
  3. ASPIRIN [Concomitant]
     Route: 048
  4. DIGOXIN [Concomitant]
     Dosage: 0.25 MG EVERY DAY EXCEPT ON SUNDAY
     Route: 048
  5. SERETIDE DISKUS [Concomitant]
     Route: 055
  6. LEVOTHYROXINE SODIUM [Concomitant]
     Route: 048
  7. VOLTAREN [Concomitant]
     Route: 003

REACTIONS (2)
  - CYTOLYTIC HEPATITIS [None]
  - HEPATITIS CHOLESTATIC [None]
